FAERS Safety Report 16654802 (Version 1)
Quarter: 2019Q3

REPORT INFORMATION
  Report Type: Spontaneous
  Country: IT (occurrence: IT)
  Receive Date: 20190801
  Receipt Date: 20190801
  Transmission Date: 20191004
  Serious: Yes (Life-Threatening)
  Sender: FDA-Public Use
  Company Number: IT-ROCHE-2367740

PATIENT
  Age: 41 Year
  Sex: Female

DRUGS (2)
  1. PERJETA [Suspect]
     Active Substance: PERTUZUMAB
     Indication: BREAST CANCER
     Route: 040
     Dates: start: 20190617, end: 20190617
  2. KANJINTI [Concomitant]
     Active Substance: TRASTUZUMAB-ANNS
     Indication: BREAST CANCER
     Route: 040
     Dates: start: 20190617, end: 20190711

REACTIONS (3)
  - Rash [Recovered/Resolved]
  - Tachycardia [Recovered/Resolved]
  - Dyspnoea [Recovered/Resolved]

NARRATIVE: CASE EVENT DATE: 20190617
